FAERS Safety Report 4687473-4 (Version None)
Quarter: 2005Q2

REPORT INFORMATION
  Report Type: 
  Country: None (occurrence: None)
  Receive Date: 20050609
  Receipt Date: 20050609
  Transmission Date: 20051028
  Serious: Yes (Other)
  Sender: FDA-Public Use
  Company Number: None

PATIENT
  Sex: Male
  Weight: 73.9 kg

DRUGS (1)
  1. PROLEUKIN [Suspect]
     Indication: MALIGNANT MELANOMA
     Dosage: 720,000 IU IV OVER 15 MINUTES Q8HR FOR A MAXIMUM OF 12 DOSES EVERY 21 DAYS
     Route: 042
     Dates: start: 20050510

REACTIONS (1)
  - HYPOPHOSPHATAEMIA [None]
